FAERS Safety Report 5731237-7 (Version None)
Quarter: 2008Q2

REPORT INFORMATION
  Report Type: 
  Country: None (occurrence: None)
  Receive Date: 20080507
  Receipt Date: 20080430
  Transmission Date: 20081010
  Serious: Yes (Other)
  Sender: FDA-Public Use
  Company Number: US-BOEHRINGER INGELHEIM GMBH, GERMANY-2008-BP-05862BP

PATIENT
  Age: 56 Year
  Sex: Male

DRUGS (5)
  1. MOBIC [Suspect]
     Indication: OSTEOARTHRITIS
     Route: 048
     Dates: start: 20070820
  2. MOBIC [Suspect]
     Indication: PAIN
  3. AVALIDE [Concomitant]
  4. ASTELIN [Concomitant]
  5. NASALCROM [Concomitant]

REACTIONS (1)
  - BURSITIS [None]
